FAERS Safety Report 14979119 (Version 5)
Quarter: 2020Q1

REPORT INFORMATION
  Report Type: Report from Study
  Country: DE (occurrence: DE)
  Receive Date: 20180606
  Receipt Date: 20200130
  Transmission Date: 20200409
  Serious: Yes (Hospitalization, Other)
  Sender: FDA-Public Use
  Company Number: DE-SA-2015SA102294

PATIENT
  Age: 45 Year
  Sex: Female

DRUGS (5)
  1. DICLOFENAC [Concomitant]
     Active Substance: DICLOFENAC
     Indication: PAIN
     Dosage: UNK UNK,QD
     Route: 048
  2. LYRICA [Concomitant]
     Active Substance: PREGABALIN
     Indication: POLLAKIURIA
     Dosage: UNK UNK,BID
     Route: 048
  3. DARIFENACIN. [Concomitant]
     Active Substance: DARIFENACIN
     Indication: POLLAKIURIA
     Dosage: UNK UNK,QD
     Route: 048
  4. TERIFLUNOMIDE. [Suspect]
     Active Substance: TERIFLUNOMIDE
     Indication: MULTIPLE SCLEROSIS
     Dosage: 14 MG,UNK
     Route: 048
     Dates: start: 201505
  5. MORPHINE [Concomitant]
     Active Substance: MORPHINE
     Indication: PAIN
     Dosage: UNK UNK,TID

REACTIONS (18)
  - Hypoaesthesia [Unknown]
  - Cough [Unknown]
  - Muscular weakness [Recovered/Resolved]
  - Pain in extremity [Recovering/Resolving]
  - Memory impairment [Unknown]
  - Influenza [Unknown]
  - Swelling [Not Recovered/Not Resolved]
  - Weight increased [Unknown]
  - Rhinitis [Unknown]
  - Hepatic enzyme increased [Not Recovered/Not Resolved]
  - Limb injury [Not Recovered/Not Resolved]
  - Peroneal nerve palsy [Unknown]
  - Fall [Unknown]
  - Paraesthesia [Recovered/Resolved]
  - Ligament rupture [Not Recovered/Not Resolved]
  - Multiple sclerosis [Unknown]
  - Sensory disturbance [Recovered/Resolved]
  - Condition aggravated [Unknown]

NARRATIVE: CASE EVENT DATE: 20150707
